FAERS Safety Report 4965709-X (Version None)
Quarter: 2006Q2

REPORT INFORMATION
  Report Type: 
  Country: None (occurrence: None)
  Receive Date: 20060405
  Receipt Date: 20060405
  Transmission Date: 20061013
  Serious: Yes (Death)
  Sender: FDA-Public Use
  Company Number: None

PATIENT
  Age: 67 Year
  Sex: Female
  Weight: 131.5431 kg

DRUGS (10)
  1. ALLOPURINOL [Suspect]
     Indication: GOUT
     Dosage: 400 MG Q DAY
     Dates: start: 20060201, end: 20060323
  2. ADVAIR DISKUS 100/50 [Concomitant]
  3. GLYBURIDE [Concomitant]
  4. ISOSORBIDE MONONOTRATE [Concomitant]
  5. NYSTATIN [Concomitant]
  6. CLOPIDOGREL [Concomitant]
  7. ACARBOSE [Concomitant]
  8. LANSOPRAZOLE [Concomitant]
  9. FUROSEMIDE [Concomitant]
  10. DOPAMINE [Concomitant]

REACTIONS (7)
  - ASTERIXIS [None]
  - BLOOD CREATININE INCREASED [None]
  - DRUG TOXICITY [None]
  - EXFOLIATIVE RASH [None]
  - FATIGUE [None]
  - HEPATIC FAILURE [None]
  - ORTHOSTATIC HYPOTENSION [None]
